FAERS Safety Report 6692921-4 (Version None)
Quarter: 2010Q2

REPORT INFORMATION
  Report Type: 
  Country: None (occurrence: None)
  Receive Date: 20100422
  Receipt Date: 20100412
  Transmission Date: 20101027
  Serious: Yes (Hospitalization)
  Sender: FDA-Public Use
  Company Number: ES-PURDUE-GBR-2010-0006430

PATIENT
  Age: 70 Year
  Sex: Male

DRUGS (7)
  1. SEVREDOL TABLETS [Suspect]
     Indication: CERVICAL ROOT PAIN
     Dosage: 80 MG, QID
     Route: 048
     Dates: start: 20091128, end: 20091210
  2. AMLODIPINE [Concomitant]
  3. LOSARTAN POTASSIUM [Concomitant]
  4. METAMIZOLE [Concomitant]
  5. OMEPRAZOLE [Concomitant]
  6. ATENOLOL [Concomitant]
  7. METFORMIN [Concomitant]

REACTIONS (4)
  - DRUG TOXICITY [None]
  - OXYGEN SATURATION DECREASED [None]
  - RESPIRATORY ACIDOSIS [None]
  - SOMNOLENCE [None]
